FAERS Safety Report 17309315 (Version 1)
Quarter: 2020Q1

REPORT INFORMATION
  Report Type: Spontaneous
  Country: US (occurrence: US)
  Receive Date: 20200123
  Receipt Date: 20200123
  Transmission Date: 20200409
  Serious: Yes (Hospitalization)
  Sender: FDA-Public Use
  Company Number: US-GW PHARMA-202001USGW00136

PATIENT

DRUGS (4)
  1. ONFI [Suspect]
     Active Substance: CLOBAZAM
     Dosage: WEANING
     Route: 065
     Dates: start: 201912
  2. ONFI [Suspect]
     Active Substance: CLOBAZAM
     Indication: PRODUCT USED FOR UNKNOWN INDICATION
     Dosage: 30 MILLIGRAM, BID
     Route: 065
     Dates: end: 201912
  3. ONFI [Suspect]
     Active Substance: CLOBAZAM
     Dosage: 30 MILLIGRAM, QD (10MG AM, 20MG PM)
     Route: 065
     Dates: start: 201912, end: 201912
  4. EPIDIOLEX [Suspect]
     Active Substance: CANNABIDIOL
     Indication: PRODUCT USED FOR UNKNOWN INDICATION
     Dosage: UNK
     Route: 065

REACTIONS (3)
  - Anticonvulsant drug level increased [Unknown]
  - Hospitalisation [Unknown]
  - Insomnia [Unknown]

NARRATIVE: CASE EVENT DATE: 201912
